FAERS Safety Report 6005068-7 (Version None)
Quarter: 2008Q4

REPORT INFORMATION
  Report Type: 
  Country: None (occurrence: None)
  Receive Date: 20081216
  Receipt Date: 20081208
  Transmission Date: 20090506
  Serious: Yes (Congenital Anomaly, Other)
  Sender: FDA-Public Use
  Company Number: PHHY2008FR31508

PATIENT
  Sex: Female

DRUGS (4)
  1. TRILEPTAL [Suspect]
     Dosage: UNK
     Route: 064
  2. URBANYL [Suspect]
     Dosage: UNK
     Route: 064
  3. TOPIRAMATE [Suspect]
     Route: 064
  4. LAMICTAL [Suspect]
     Route: 064

REACTIONS (6)
  - ANOMALY OF EXTERNAL EAR CONGENITAL [None]
  - DRUG EXPOSURE DURING PREGNANCY [None]
  - DYSMORPHISM [None]
  - HEAD DEFORMITY [None]
  - LIMB DEFORMITY [None]
  - RETROGNATHIA [None]
